FAERS Safety Report 10696057 (Version 1)
Quarter: 2015Q1

REPORT INFORMATION
  Report Type: Spontaneous
  Country: US (occurrence: US)
  Receive Date: 20150107
  Receipt Date: 20150107
  Transmission Date: 20150721
  Serious: Yes (Other)
  Sender: FDA-Public Use
  Company Number: US-BAYER-2015-001195

PATIENT
  Age: 27 Year
  Sex: Female

DRUGS (1)
  1. CIPRO [Suspect]
     Active Substance: CIPROFLOXACIN HYDROCHLORIDE
     Indication: MENINGITIS BACTERIAL
     Dosage: UNK UNK, BID
     Route: 042
     Dates: start: 2014

REACTIONS (11)
  - Speech disorder [None]
  - Muscular weakness [None]
  - Walking aid user [None]
  - General physical health deterioration [None]
  - Seizure [Not Recovered/Not Resolved]
  - Social problem [None]
  - Impaired driving ability [None]
  - Abasia [None]
  - Paraesthesia [None]
  - Amnesia [None]
  - Drug prescribing error [None]

NARRATIVE: CASE EVENT DATE: 2014
